FAERS Safety Report 26061024 (Version 1)
Quarter: 2025Q4

REPORT INFORMATION
  Report Type: Spontaneous
  Country: US (occurrence: US)
  Receive Date: 20251118
  Receipt Date: 20251118
  Transmission Date: 20260118
  Serious: No
  Sender: INCYTE
  Company Number: US-EVENT-004864

PATIENT

DRUGS (1)
  1. NIKTIMVO [Suspect]
     Active Substance: AXATILIMAB-CSFR
     Indication: Graft versus host disease in skin
     Dosage: UNK
     Route: 065

REACTIONS (2)
  - Blood fibrinogen decreased [Recovered/Resolved]
  - Haemorrhage [Recovered/Resolved]
